FAERS Safety Report 4690056-3 (Version None)
Quarter: 2005Q2

REPORT INFORMATION
  Report Type: 
  Country: None (occurrence: None)
  Receive Date: 20050614
  Receipt Date: 20050601
  Transmission Date: 20051028
  Serious: Yes (Other)
  Sender: FDA-Public Use
  Company Number: 2005082545

PATIENT
  Age: 48 Year
  Sex: Male

DRUGS (4)
  1. VFEND [Suspect]
     Indication: BRONCHOPULMONARY ASPERGILLOSIS
     Dosage: 400 MG (200 MG, BID), ORAL
     Route: 048
     Dates: start: 20050518, end: 20050530
  2. TAZOCILLINE (PIPERACILLIN SODIUM, TAZOBACTAM SODIUM) [Concomitant]
  3. PANTOPRAZOLE SODIUM [Concomitant]
  4. CALCIPARINE [Concomitant]

REACTIONS (1)
  - NEUTROPENIA [None]
